FAERS Safety Report 8480846-3 (Version None)
Quarter: 2012Q2

REPORT INFORMATION
  Report Type: 
  Country: None (occurrence: None)
  Receive Date: 20120626
  Receipt Date: 20120626
  Transmission Date: 20120825
  Serious: Yes (Other)
  Sender: FDA-Public Use
  Company Number: None

PATIENT
  Sex: Female

DRUGS (1)
  1. NEURONTIN [Suspect]
     Indication: PAIN
     Dosage: 100 MG 3 TIMES A DAY PO
     Route: 048
     Dates: start: 20120525, end: 20120604

REACTIONS (2)
  - URTICARIA [None]
  - PAIN [None]
